FAERS Safety Report 13657252 (Version 1)
Quarter: 2017Q2

REPORT INFORMATION
  Report Type: Report from Study
  Country: US (occurrence: US)
  Receive Date: 20170615
  Receipt Date: 20170615
  Transmission Date: 20170830
  Serious: Yes (Death, Hospitalization, Other)
  Sender: FDA-Public Use
  Company Number: US-MYLANLABS-2017M1036044

PATIENT

DRUGS (4)
  1. CITALOPRAM [Suspect]
     Active Substance: CITALOPRAM HYDROBROMIDE
     Indication: PRODUCT USED FOR UNKNOWN INDICATION
     Dosage: HE TOOK MIXED OVERDOSE OF CLONIDINE AND CITALOPRAM
     Route: 065
  2. CLONIDINE. [Suspect]
     Active Substance: CLONIDINE
     Indication: PRODUCT USED FOR UNKNOWN INDICATION
     Dosage: HE TOOK MIXED OVERDOSE OF CLONIDINE AND CITALOPRAM
     Route: 065
  3. KETAMINE [Concomitant]
     Active Substance: KETAMINE
     Indication: AGITATION
     Dosage: 6.25MG/KG
     Route: 030
  4. AMFETAMINE [Suspect]
     Active Substance: AMPHETAMINE
     Indication: PRODUCT USED FOR UNKNOWN INDICATION
     Route: 065

REACTIONS (4)
  - Toxicity to various agents [Fatal]
  - Cardiac arrest [Fatal]
  - Drug use disorder [Fatal]
  - Overdose [Fatal]
